FAERS Safety Report 5441175-5 (Version None)
Quarter: 2007Q3

REPORT INFORMATION
  Report Type: 
  Country: None (occurrence: None)
  Receive Date: 20070901
  Receipt Date: 20070819
  Transmission Date: 20080115
  Serious: Yes (Other)
  Sender: FDA-Public Use
  Company Number: US-PFIZER INC-2007069901

PATIENT
  Sex: Male

DRUGS (3)
  1. CHANTIX [Suspect]
     Indication: EX-SMOKER
     Dates: start: 20070701, end: 20070801
  2. CLONIDINE [Concomitant]
  3. ZANTAC 150 [Concomitant]

REACTIONS (9)
  - ASTHENIA [None]
  - DECREASED ACTIVITY [None]
  - DECREASED APPETITE [None]
  - DIARRHOEA [None]
  - INSOMNIA [None]
  - NAUSEA [None]
  - TONGUE COATED [None]
  - VOMITING [None]
  - WEIGHT DECREASED [None]
